FAERS Safety Report 5316906-5 (Version None)
Quarter: 2007Q2

REPORT INFORMATION
  Report Type: 
  Country: None (occurrence: None)
  Receive Date: 20070504
  Receipt Date: 20070425
  Transmission Date: 20071010
  Serious: Yes (Hospitalization)
  Sender: FDA-Public Use
  Company Number: FR-GLAXOSMITHKLINE-B0468811A

PATIENT
  Age: 82 Year
  Sex: Male

DRUGS (10)
  1. ARIXTRA [Suspect]
     Indication: EMBOLISM
     Route: 058
     Dates: start: 20070302, end: 20070308
  2. SOLUPRED [Suspect]
     Indication: BRONCHITIS CHRONIC
     Dosage: 20MG THREE TIMES PER DAY
     Route: 048
     Dates: start: 20070304, end: 20070310
  3. CALCIPARINE [Concomitant]
     Indication: EMBOLISM
     Dosage: .2ML TWICE PER DAY
     Route: 058
     Dates: start: 20060704, end: 20070302
  4. CIPROFLOXACIN HCL [Concomitant]
     Indication: BRONCHITIS CHRONIC
     Dosage: 1000MG PER DAY
     Route: 048
     Dates: start: 20070304, end: 20070313
  5. ADANCOR [Concomitant]
     Dosage: 20MG PER DAY
     Route: 048
  6. ZECLAR [Concomitant]
     Indication: BRONCHITIS CHRONIC
     Dosage: 1000MG PER DAY
     Route: 048
     Dates: start: 20070304, end: 20070310
  7. NEXIUM [Concomitant]
     Route: 050
     Dates: end: 20070314
  8. ISOPTIN [Concomitant]
  9. LOXAPAC [Concomitant]
  10. LASIX [Concomitant]

REACTIONS (3)
  - ANAEMIA [None]
  - PAIN [None]
  - RECTAL HAEMORRHAGE [None]
